FAERS Safety Report 15867601 (Version 1)
Quarter: 2019Q1

REPORT INFORMATION
  Report Type: Spontaneous
  Country: FR (occurrence: FR)
  Receive Date: 20190125
  Receipt Date: 20190125
  Transmission Date: 20190417
  Serious: Yes (Hospitalization)
  Sender: FDA-Public Use
  Company Number: FR-BAYER-2018-239095

PATIENT
  Age: 73 Year
  Sex: Male

DRUGS (2)
  1. STIVARGA [Suspect]
     Active Substance: REGORAFENIB
     Indication: COLORECTAL CANCER METASTATIC
     Dosage: 80 MG, QD
     Dates: start: 20181120, end: 20181123
  2. STIVARGA [Suspect]
     Active Substance: REGORAFENIB
     Indication: COLORECTAL CANCER METASTATIC
     Dosage: 80 MG, QD
     Dates: start: 20181204

REACTIONS (5)
  - Constipation [Recovering/Resolving]
  - Hyperaesthesia [None]
  - Anal fissure [None]
  - Haemorrhoids [None]
  - Off label use [None]

NARRATIVE: CASE EVENT DATE: 20181120
